FAERS Safety Report 14292332 (Version 1)
Quarter: 2017Q4

REPORT INFORMATION
  Report Type: Spontaneous
  Country: DE (occurrence: DE)
  Receive Date: 20171215
  Receipt Date: 20171215
  Transmission Date: 20180321
  Serious: Yes (Other)
  Sender: FDA-Public Use
  Company Number: DE-009507513-1712DEU004650

PATIENT
  Sex: Male
  Weight: 86 kg

DRUGS (1)
  1. PROPECIA [Suspect]
     Active Substance: FINASTERIDE
     Dosage: 1 MG, DAILY
     Route: 048
     Dates: start: 200610, end: 201211

REACTIONS (8)
  - Barth syndrome [Unknown]
  - Whipple^s disease [Unknown]
  - Somatic symptom disorder [Unknown]
  - Cachexia [Unknown]
  - Polymyositis [Unknown]
  - Myotonic dystrophy [Unknown]
  - Coeliac disease [Unknown]
  - Drug withdrawal syndrome [Unknown]
